FAERS Safety Report 24360011 (Version 1)
Quarter: 2024Q3

REPORT INFORMATION
  Report Type: Report from Study
  Country: US (occurrence: US)
  Receive Date: 20240925
  Receipt Date: 20240925
  Transmission Date: 20241016
  Serious: Yes (Hospitalization, Other)
  Sender: ABBVIE
  Company Number: US-ABBVIE-5933980

PATIENT
  Sex: Female

DRUGS (1)
  1. RINVOQ [Suspect]
     Active Substance: UPADACITINIB
     Indication: Colitis ulcerative
     Dosage: FORM STRENGTH 45MG
     Route: 048
     Dates: start: 20240827

REACTIONS (6)
  - Diarrhoea haemorrhagic [Recovering/Resolving]
  - Rehabilitation therapy [Unknown]
  - Decreased appetite [Recovering/Resolving]
  - Cognitive disorder [Unknown]
  - Speech disorder [Unknown]
  - Abdominal pain upper [Recovering/Resolving]

NARRATIVE: CASE EVENT DATE: 20240101
